FAERS Safety Report 25405304 (Version 2)
Quarter: 2025Q2

REPORT INFORMATION
  Report Type: Spontaneous
  Country: NO (occurrence: NO)
  Receive Date: 20250606
  Receipt Date: 20250623
  Transmission Date: 20250717
  Serious: Yes (Hospitalization, Other)
  Sender: Kenvue
  Company Number: NO-CHEPLA-2025006489

PATIENT

DRUGS (11)
  1. LOPERAMIDE HYDROCHLORIDE [Suspect]
     Active Substance: LOPERAMIDE HYDROCHLORIDE
     Indication: Product used for unknown indication
     Route: 065
  2. GANCICLOVIR [Suspect]
     Active Substance: GANCICLOVIR
     Indication: Cytomegalovirus enterocolitis
     Route: 042
  3. CHOLESTYRAMINE [Suspect]
     Active Substance: CHOLESTYRAMINE
     Indication: Diarrhoea
     Route: 065
  4. METHYLPREDNISOLONE [Suspect]
     Active Substance: METHYLPREDNISOLONE
     Indication: Product used for unknown indication
     Dosage: 60 MILLIGRAM, ONCE A DAY
     Route: 042
  5. PREDNISOLONE [Concomitant]
     Active Substance: PREDNISOLONE
     Indication: Iridocyclitis
     Dosage: 17.5 MILLIGRAM, ONCE A DAY
     Route: 065
  6. PREDNISOLONE [Concomitant]
     Active Substance: PREDNISOLONE
     Indication: Scleritis
     Dosage: 10 MILLIGRAM, ONCE A DAY
     Route: 065
  7. RITUXIMAB [Concomitant]
     Active Substance: RITUXIMAB
     Indication: Enterocolitis
     Dosage: 375 MILLIGRAM/SQ. METER, ONCE A DAY (DAY 1)
     Route: 042
  8. BENDAMUSTINE [Concomitant]
     Active Substance: BENDAMUSTINE
     Indication: Product used for unknown indication
     Dosage: ON DAYS 2 AND 2
     Route: 042
  9. BENDAMUSTINE [Concomitant]
     Active Substance: BENDAMUSTINE
     Route: 042
  10. PENICILLIN G [Concomitant]
     Active Substance: PENICILLIN G
     Indication: Product used for unknown indication
     Route: 042
  11. GENTAMICIN [Concomitant]
     Active Substance: GENTAMICIN
     Indication: Product used for unknown indication
     Route: 042

REACTIONS (13)
  - Hypoalbuminaemia [Unknown]
  - Renal failure [Unknown]
  - Hypogammaglobulinaemia [Unknown]
  - Enterococcal infection [Unknown]
  - Pseudomonas infection [Unknown]
  - Hypernatraemia [Unknown]
  - Hypokalaemia [Unknown]
  - Cystatin C increased [Unknown]
  - Hypovolaemia [Unknown]
  - Electrolyte imbalance [Unknown]
  - Protein total decreased [Unknown]
  - Drug ineffective [Unknown]
  - Off label use [Unknown]
